FAERS Safety Report 14380492 (Version 2)
Quarter: 2018Q1

REPORT INFORMATION
  Report Type: Spontaneous
  Country: BR (occurrence: BR)
  Receive Date: 20180112
  Receipt Date: 20180117
  Transmission Date: 20180509
  Serious: Yes (Hospitalization, Other)
  Sender: FDA-Public Use
  Company Number: BR-ROCHE-2052356

PATIENT
  Sex: Female

DRUGS (1)
  1. RIVOTRIL [Suspect]
     Active Substance: CLONAZEPAM
     Indication: PRODUCT USED FOR UNKNOWN INDICATION
     Dosage: RIVOTRIL 2.5 MG/ML
     Route: 048

REACTIONS (6)
  - Sedation [Unknown]
  - Drug dose omission [Unknown]
  - Slow speech [Unknown]
  - Incorrect dose administered [Unknown]
  - Product dropper issue [Unknown]
  - Drug administration error [Unknown]
